FAERS Safety Report 24556643 (Version 2)
Quarter: 2024Q4

REPORT INFORMATION
  Report Type: Spontaneous
  Country: US (occurrence: US)
  Receive Date: 20241028
  Receipt Date: 20241202
  Transmission Date: 20250114
  Serious: No
  Sender: GLAXOSMITHKLINE
  Company Number: US-GSKCCFUS-Case-02130911_AE-117513

PATIENT
  Sex: Female

DRUGS (1)
  1. INCRUSE ELLIPTA [Suspect]
     Active Substance: UMECLIDINIUM BROMIDE
     Indication: Asthma
     Dosage: UNK, 62.5 MCG

REACTIONS (4)
  - Dyspnoea [Recovering/Resolving]
  - Chest discomfort [Unknown]
  - Off label use [Unknown]
  - Product complaint [Unknown]
